FAERS Safety Report 14613632 (Version 3)
Quarter: 2018Q2

REPORT INFORMATION
  Report Type: Spontaneous
  Country: US (occurrence: JP)
  Receive Date: 20180308
  Receipt Date: 20180501
  Transmission Date: 20180711
  Serious: Yes (Other)
  Sender: FDA-Public Use
  Company Number: US-SUNOVION-2018SUN000832

PATIENT
  Age: 68 Year
  Sex: Female
  Weight: 39.1 kg

DRUGS (15)
  1. CLARITHROMYCIN. [Concomitant]
     Active Substance: CLARITHROMYCIN
     Dosage: UNK
     Route: 065
     Dates: start: 20180216
  2. BISOLVON [Concomitant]
     Active Substance: BROMHEXINE HYDROCHLORIDE
     Dosage: FINE GRANULE 2% UNKNOWN
     Route: 065
     Dates: start: 20180216
  3. URINORM [Concomitant]
     Active Substance: BENZBROMARONE
     Dosage: UNK
     Dates: start: 20180216
  4. LANSOPRAZOLE. [Concomitant]
     Active Substance: LANSOPRAZOLE
     Dosage: UNKNOWN
     Route: 065
     Dates: start: 20180216
  5. TOUGHMAC E [Concomitant]
     Active Substance: AMYLASE\LIPASE\PROTEASE
     Dosage: UNK
     Route: 065
     Dates: start: 20180216
  6. ALLOID G [Concomitant]
     Active Substance: SODIUM ALGINATE
     Indication: GASTROOESOPHAGEAL REFLUX DISEASE
     Dosage: 30 ML, TID
     Route: 048
     Dates: start: 20180216
  7. METHYLEPHEDRINE [Concomitant]
     Active Substance: METHYLEPHEDRINE
     Dosage: POWDER 10% UNKNOWN
     Route: 065
     Dates: start: 20180216
  8. MYONAL [Concomitant]
     Active Substance: EPERISONE HYDROCHLORIDE
     Dosage: UNK
     Route: 065
     Dates: start: 20180216
  9. INDACATEROL [Suspect]
     Active Substance: INDACATEROL
     Indication: BRONCHITIS CHRONIC
     Dosage: 150 ?G, QD
     Route: 055
     Dates: start: 20180216, end: 20180222
  10. ALESION [Concomitant]
     Active Substance: EPINASTINE HYDROCHLORIDE
     Dosage: UNK
     Route: 065
     Dates: start: 20180216
  11. PRANLUKAST [Concomitant]
     Active Substance: PRANLUKAST
     Dosage: UNK
     Route: 065
     Dates: start: 20180216
  12. VALSARTAN. [Concomitant]
     Active Substance: VALSARTAN
     Dosage: UNK
     Dates: start: 20180216
  13. THEOLONG [Concomitant]
     Active Substance: THEOPHYLLINE ANHYDROUS
     Dosage: 50% GRANULES UNKNOWN
     Route: 065
     Dates: start: 20180216
  14. AMBROXOL HCL [Concomitant]
     Active Substance: AMBROXOL HYDROCHLORIDE
     Dosage: UNK
     Route: 065
     Dates: start: 20180216
  15. SYNTHETIC ANTIBACTERIALS [Concomitant]
     Active Substance: UNSPECIFIED INGREDIENT

REACTIONS (3)
  - Vomiting [Unknown]
  - Oropharyngeal pain [Recovered/Resolved]
  - Pneumonia aspiration [Recovering/Resolving]

NARRATIVE: CASE EVENT DATE: 20180222
